FAERS Safety Report 4680038-X (Version None)
Quarter: 2005Q2

REPORT INFORMATION
  Report Type: 
  Country: None (occurrence: None)
  Receive Date: 20050602
  Receipt Date: 20050524
  Transmission Date: 20051028
  Serious: Yes (Disabling)
  Sender: FDA-Public Use
  Company Number: JP-GLAXOSMITHKLINE-B0382512A

PATIENT
  Age: 63 Year
  Sex: Male

DRUGS (6)
  1. VALTREX [Suspect]
     Indication: HERPES ZOSTER
     Route: 048
     Dates: start: 20050518, end: 20050520
  2. ALFAROL [Concomitant]
     Route: 048
  3. SELBEX [Concomitant]
     Route: 048
  4. KALIMATE [Concomitant]
     Route: 048
  5. CALTAN [Concomitant]
     Route: 048
  6. ADALAT [Concomitant]
     Route: 048

REACTIONS (3)
  - DELIRIUM [None]
  - HEADACHE [None]
  - HYPOAESTHESIA ORAL [None]
